FAERS Safety Report 9241057 (Version 1)
Quarter: 2013Q2

REPORT INFORMATION
  Report Type: Spontaneous
  Country: US (occurrence: None)
  Receive Date: 20130418
  Receipt Date: 20130418
  Transmission Date: 20140414
  Serious: Yes (Other)
  Sender: FDA-Public Use
  Company Number: None

PATIENT
  Age: 32 Year
  Sex: Female
  Weight: 58.97 kg

DRUGS (1)
  1. LYRICA [Suspect]
     Indication: FIBROMYALGIA
     Dosage: 100 MG TWICE A DAY  PO
     Route: 048
     Dates: start: 20130403, end: 20130416

REACTIONS (10)
  - Dyspepsia [None]
  - Dyspepsia [None]
  - Sensation of foreign body [None]
  - Hunger [None]
  - Thirst [None]
  - Constipation [None]
  - Fatigue [None]
  - Disturbance in attention [None]
  - Condition aggravated [None]
  - Thinking abnormal [None]
